FAERS Safety Report 20497340 (Version 1)
Quarter: 2022Q1

REPORT INFORMATION
  Report Type: Spontaneous
  Country: US (occurrence: US)
  Receive Date: 20220221
  Receipt Date: 20220221
  Transmission Date: 20220424
  Serious: No
  Sender: FDA-Public Use
  Company Number: US-Prasco Laboratories-PRAS20220074

PATIENT
  Age: 65 Year
  Sex: Female

DRUGS (1)
  1. ESTRADIOL [Suspect]
     Active Substance: ESTRADIOL
     Indication: Vaginal neoplasm
     Dosage: UNKNOWN
     Route: 061
     Dates: start: 20220213, end: 20220213

REACTIONS (5)
  - Skin erosion [Recovering/Resolving]
  - Hypersensitivity [Recovering/Resolving]
  - Pain of skin [Recovering/Resolving]
  - Rash erythematous [Recovering/Resolving]
  - Intentional product use issue [Unknown]

NARRATIVE: CASE EVENT DATE: 20220213
